FAERS Safety Report 15878228 (Version 2)
Quarter: 2019Q3

REPORT INFORMATION
  Report Type: Spontaneous
  Country: US (occurrence: US)
  Receive Date: 20190128
  Receipt Date: 20190918
  Transmission Date: 20191004
  Serious: No
  Sender: FDA-Public Use
  Company Number: US-PFIZER INC-2019034007

PATIENT
  Age: 56 Year
  Sex: Female

DRUGS (1)
  1. XELJANZ XR [Suspect]
     Active Substance: TOFACITINIB CITRATE
     Indication: RHEUMATOID ARTHRITIS
     Dosage: 11 MG, UNK
     Dates: start: 20180907, end: 20190807

REACTIONS (4)
  - Pleural effusion [Unknown]
  - Cough [Unknown]
  - Abdominal hernia [Unknown]
  - Splenic lesion [Unknown]

NARRATIVE: CASE EVENT DATE: 20190114
